FAERS Safety Report 9336734 (Version 1)
Quarter: 2013Q2

REPORT INFORMATION
  Report Type: Spontaneous
  Country: GB (occurrence: GB)
  Receive Date: 20130607
  Receipt Date: 20130607
  Transmission Date: 20140414
  Serious: Yes (Death, Other)
  Sender: FDA-Public Use
  Company Number: PHHY2013GB057460

PATIENT
  Age: 67 Year
  Sex: Female

DRUGS (6)
  1. OXYCODONE HYDROCHLORIDE [Suspect]
     Indication: NOSOCOMIAL INFECTION
     Dosage: UNK UKN, UNK
     Route: 048
     Dates: start: 20090901
  2. CLARITHROMYCIN [Suspect]
     Indication: NOSOCOMIAL INFECTION
     Dosage: UNK UKN, UNK
     Route: 048
     Dates: start: 20090901
  3. ERYTHROMYCIN [Suspect]
     Indication: NOSOCOMIAL INFECTION
     Dosage: UNK UKN, UNK
     Route: 048
     Dates: start: 20090901
  4. SERTRALINE [Suspect]
     Indication: NOSOCOMIAL INFECTION
     Dosage: UNK UKN, UNK
     Route: 048
     Dates: start: 20090901
  5. AUGMENTIN [Suspect]
     Indication: NOSOCOMIAL INFECTION
     Dosage: UNK UKN, UNK
     Route: 048
     Dates: start: 20090901
  6. DEXAMETHASONE [Suspect]
     Indication: NOSOCOMIAL INFECTION
     Dosage: UNK UKN, UNK
     Route: 048
     Dates: start: 20090901

REACTIONS (2)
  - Respiratory disorder [Fatal]
  - Dyspnoea [Not Recovered/Not Resolved]
